FAERS Safety Report 19895194 (Version 3)
Quarter: 2021Q4

REPORT INFORMATION
  Report Type: Report from Study
  Country: CA (occurrence: CA)
  Receive Date: 20210929
  Receipt Date: 20211220
  Transmission Date: 20220303
  Serious: Yes (Hospitalization)
  Sender: FDA-Public Use
  Company Number: CA-GSKJP-CA2021AMR171012AA

PATIENT
  Age: 70 Year
  Sex: Female

DRUGS (5)
  1. MEPOLIZUMAB [Suspect]
     Active Substance: MEPOLIZUMAB
     Indication: Asthma
     Dosage: 100 MG, Z, EVERY 4 WEEKS
     Route: 058
     Dates: start: 20181219
  2. MEPOLIZUMAB [Suspect]
     Active Substance: MEPOLIZUMAB
     Indication: Asthma
     Dosage: 100MG/SC EVERY 4 WEEKS
     Route: 058
     Dates: start: 20181219
  3. MEPOLIZUMAB [Suspect]
     Active Substance: MEPOLIZUMAB
     Indication: Asthma
     Dosage: 100 MG, Z, EVERY 4 WEEK
     Route: 058
     Dates: start: 20181219
  4. MEPOLIZUMAB [Suspect]
     Active Substance: MEPOLIZUMAB
     Indication: Asthma
     Dosage: 100 MG, Z , EVERY 4 WEEKS
     Route: 058
     Dates: start: 20181219
  5. XARELTO [Concomitant]
     Active Substance: RIVAROXABAN
     Indication: Product used for unknown indication
     Dosage: 1 DF, QD

REACTIONS (4)
  - Hip arthroplasty [Unknown]
  - Urinary tract infection [Unknown]
  - Pain [Recovered/Resolved]
  - Walking aid user [Unknown]

NARRATIVE: CASE EVENT DATE: 20210817
